FAERS Safety Report 22140128 (Version 1)
Quarter: 2023Q1

REPORT INFORMATION
  Report Type: Spontaneous
  Country: US (occurrence: None)
  Receive Date: 20230326
  Receipt Date: 20230326
  Transmission Date: 20230417
  Serious: Yes (Other)
  Sender: FDA-Public Use
  Company Number: None

PATIENT
  Age: 74 Year
  Sex: Female
  Weight: 83.25 kg

DRUGS (1)
  1. PAXLOVID [Suspect]
     Active Substance: NIRMATRELVIR\RITONAVIR
     Indication: COVID-19
     Dosage: FREQUENCY : TWICE A DAY;?
     Route: 048
     Dates: start: 20230320, end: 20230323

REACTIONS (5)
  - Lip swelling [None]
  - Chapped lips [None]
  - Stomatitis [None]
  - Dizziness [None]
  - Drug hypersensitivity [None]

NARRATIVE: CASE EVENT DATE: 20230320
